FAERS Safety Report 25615490 (Version 1)
Quarter: 2025Q3

REPORT INFORMATION
  Report Type: Spontaneous
  Country: US (occurrence: US)
  Receive Date: 20250729
  Receipt Date: 20250729
  Transmission Date: 20251021
  Serious: Yes (Other)
  Sender: AMGEN
  Company Number: US-AMGEN-USASP2025148556

PATIENT
  Sex: Female

DRUGS (2)
  1. APREMILAST [Suspect]
     Active Substance: APREMILAST
     Indication: Oral lichen planus
     Route: 065
  2. APREMILAST [Suspect]
     Active Substance: APREMILAST
     Indication: Off label use

REACTIONS (6)
  - Squamous cell carcinoma [Unknown]
  - Drug effective for unapproved indication [Unknown]
  - Weight decreased [Unknown]
  - Abdominal discomfort [Unknown]
  - Nausea [Unknown]
  - Off label use [Unknown]
